FAERS Safety Report 19008795 (Version 1)
Quarter: 2021Q1

REPORT INFORMATION
  Report Type: Spontaneous
  Country: BE (occurrence: BE)
  Receive Date: 20210316
  Receipt Date: 20210316
  Transmission Date: 20210420
  Serious: Yes (Hospitalization)
  Sender: FDA-Public Use
  Company Number: BE-ROCHE-2787157

PATIENT
  Age: 72 Year
  Sex: Female
  Weight: 53 kg

DRUGS (1)
  1. ROACTEMRA [Suspect]
     Active Substance: TOCILIZUMAB
     Indication: GIANT CELL ARTERITIS
     Dosage: DATES OF INJECTIONS: 28/JUL/2017, 29/AUG/2017, 26/SEP/2017, 30/NOV/2017, 18/JAN/2018, 21/FEB/2018, 2
     Route: 042
     Dates: start: 20170728, end: 20180808

REACTIONS (2)
  - Liver sarcoidosis [Recovering/Resolving]
  - Pulmonary sarcoidosis [Recovering/Resolving]
